FAERS Safety Report 14420753 (Version 1)
Quarter: 2018Q1

REPORT INFORMATION
  Report Type: Spontaneous
  Country: US (occurrence: US)
  Receive Date: 20180122
  Receipt Date: 20180122
  Transmission Date: 20180509
  Serious: No
  Sender: FDA-Public Use
  Company Number: US-ROCHE-1964825

PATIENT
  Age: 74 Year
  Sex: Female
  Weight: 59.02 kg

DRUGS (1)
  1. RITUXAN [Suspect]
     Active Substance: RITUXIMAB
     Indication: RHEUMATOID ARTHRITIS
     Route: 042
     Dates: start: 201603

REACTIONS (4)
  - Skin reaction [Recovering/Resolving]
  - Rash pustular [Recovering/Resolving]
  - Erythema [Recovering/Resolving]
  - Skin exfoliation [Recovered/Resolved]

NARRATIVE: CASE EVENT DATE: 201603
